FAERS Safety Report 19356282 (Version 3)
Quarter: 2021Q3

REPORT INFORMATION
  Report Type: Other
  Country: GB (occurrence: GB)
  Receive Date: 20210601
  Receipt Date: 20210713
  Transmission Date: 20211014
  Serious: Yes (Other)
  Sender: FDA-Public Use
  Company Number: GB-CELLTRION INC.-2021GB007184

PATIENT

DRUGS (21)
  1. SODIUM CHLORIDE 0.9% INTRAVENOUS INFUSION BP [Suspect]
     Active Substance: SODIUM CHLORIDE
     Indication: MEDICATION DILUTION
     Dosage: (PHARMACEUTICAL DOSE FORM: 230)
     Route: 065
  2. WATER FOR INJECTIONS [Suspect]
     Active Substance: WATER
     Dosage: (PHARMACEUTICAL DOSE FORM: 236)
     Route: 065
  3. REMSIMA [Suspect]
     Active Substance: INFLIXIMAB
     Indication: PRODUCT USED FOR UNKNOWN INDICATION
     Dosage: 340 MG
     Route: 065
  4. SODIUM CHLORIDE 0.9% INTRAVENOUS INFUSION BP [Suspect]
     Active Substance: SODIUM CHLORIDE
     Dosage: (PHARMACEUTICAL DOSE FORM: 230)
     Route: 065
  5. WATER FOR INJECTIONS [Suspect]
     Active Substance: WATER
     Dosage: (PHARMACEUTICAL DOSE FORM: 236)
     Route: 065
  6. REMSIMA [Suspect]
     Active Substance: INFLIXIMAB
     Dosage: 340 MG
     Route: 065
  7. REMSIMA [Suspect]
     Active Substance: INFLIXIMAB
     Dosage: UNK
     Route: 065
  8. SODIUM CHLORIDE 0.9% INTRAVENOUS INFUSION BP [Suspect]
     Active Substance: SODIUM CHLORIDE
     Dosage: (PHARMACEUTICAL DOSE FORM: 230)
     Route: 065
  9. WATER FOR INJECTIONS [Suspect]
     Active Substance: WATER
     Dosage: (PHARMACEUTICAL DOSE FORM: 236)
     Route: 065
  10. WATER FOR INJECTIONS [Suspect]
     Active Substance: WATER
     Dosage: (PHARMACEUTICAL DOSE FORM: 236)
     Route: 065
  11. WATER FOR INJECTIONS [Suspect]
     Active Substance: WATER
     Indication: MEDICATION DILUTION
     Dosage: (PHARMACEUTICAL DOSE FORM: 236)
     Route: 065
  12. SODIUM CHLORIDE 0.9% INTRAVENOUS INFUSION BP [Suspect]
     Active Substance: SODIUM CHLORIDE
     Dosage: (PHARMACEUTICAL DOSE FORM: 230)
     Route: 065
  13. SODIUM CHLORIDE 0.9% INTRAVENOUS INFUSION BP [Suspect]
     Active Substance: SODIUM CHLORIDE
     Dosage: (PHARMACEUTICAL DOSE FORM: 230)
     Route: 065
  14. WATER FOR INJECTIONS [Suspect]
     Active Substance: WATER
     Dosage: (PHARMACEUTICAL DOSE FORM: 236)
     Route: 065
  15. WATER FOR INJECTIONS [Suspect]
     Active Substance: WATER
     Dosage: (PHARMACEUTICAL DOSE FORM: 236)
     Route: 065
  16. SODIUM CHLORIDE 0.9% INTRAVENOUS INFUSION BP [Suspect]
     Active Substance: SODIUM CHLORIDE
     Dosage: (PHARMACEUTICAL DOSE FORM: 230)
     Route: 065
  17. REMSIMA [Suspect]
     Active Substance: INFLIXIMAB
     Dosage: UNK
     Route: 065
  18. SODIUM CHLORIDE 0.9% INTRAVENOUS INFUSION BP [Suspect]
     Active Substance: SODIUM CHLORIDE
     Dosage: (PHARMACEUTICAL DOSE FORM: 230)
     Route: 065
  19. REMSIMA [Suspect]
     Active Substance: INFLIXIMAB
     Dosage: 340 MG
     Route: 065
  20. SODIUM CHLORIDE 0.9% INTRAVENOUS INFUSION BP [Suspect]
     Active Substance: SODIUM CHLORIDE
     Dosage: (PHARMACEUTICAL DOSE FORM: 230)
     Route: 065
  21. WATER FOR INJECTIONS [Suspect]
     Active Substance: WATER
     Dosage: (PHARMACEUTICAL DOSE FORM: 236)
     Route: 065

REACTIONS (5)
  - Fatigue [Unknown]
  - Onychomycosis [Unknown]
  - Muscle spasms [Unknown]
  - Diarrhoea haemorrhagic [Unknown]
  - Mucous stools [Unknown]

NARRATIVE: CASE EVENT DATE: 202105
